FAERS Safety Report 12144389 (Version 1)
Quarter: 2016Q1

REPORT INFORMATION
  Report Type: Spontaneous
  Country: US (occurrence: None)
  Receive Date: 20160303
  Receipt Date: 20160303
  Transmission Date: 20160526
  Serious: No
  Sender: FDA-Public Use
  Company Number: None

PATIENT
  Age: 16 Year
  Sex: Female
  Weight: 63.05 kg

DRUGS (5)
  1. GEODON [Concomitant]
     Active Substance: ZIPRASIDONE HYDROCHLORIDE\ZIPRASIDONE MESYLATE
  2. FLUOXETINE [Concomitant]
     Active Substance: FLUOXETINE HYDROCHLORIDE
  3. INTUNIV [Concomitant]
     Active Substance: GUANFACINE HYDROCHLORIDE
  4. ABILIFY [Concomitant]
     Active Substance: ARIPIPRAZOLE
  5. ARIPIPRAZOLE. [Suspect]
     Active Substance: ARIPIPRAZOLE
     Indication: BIPOLAR DISORDER
     Dosage: 1/2 PILL TWICE DAILY TAKEN BY MOUTH
     Route: 048
     Dates: start: 20160205, end: 20160223

REACTIONS (2)
  - Muscle twitching [None]
  - Product substitution issue [None]
